FAERS Safety Report 15832798 (Version 2)
Quarter: 2019Q2

REPORT INFORMATION
  Report Type: Report from Study
  Country: US (occurrence: US)
  Receive Date: 20190116
  Receipt Date: 20190403
  Transmission Date: 20190711
  Serious: Yes (Hospitalization)
  Sender: FDA-Public Use
  Company Number: PHEH2019US002181

PATIENT
  Sex: Female
  Weight: 72.9 kg

DRUGS (1)
  1. ENTRESTO [Suspect]
     Active Substance: SACUBITRIL\VALSARTAN
     Indication: CARDIOMYOPATHY
     Dosage: 50 MG (SACUBITRIL 24 MG/ VALSARTAN 26 MG), UNK
     Route: 048

REACTIONS (2)
  - Product use in unapproved indication [Unknown]
  - Syncope [Recovered/Resolved]
